FAERS Safety Report 5307114-2 (Version None)
Quarter: 2007Q2

REPORT INFORMATION
  Report Type: 
  Country: None (occurrence: None)
  Receive Date: 20070425
  Receipt Date: 20070413
  Transmission Date: 20071010
  Serious: Yes (Other)
  Sender: FDA-Public Use
  Company Number: GBWYE462213APR07

PATIENT

DRUGS (5)
  1. ENBREL [Suspect]
     Indication: DRUG USE FOR UNKNOWN INDICATION
     Route: 065
     Dates: start: 20050928
  2. PROZAC [Concomitant]
     Dosage: UNKNONW
  3. CO-DYDRAMOL [Concomitant]
     Dosage: UNKNONW
  4. METHOTREXATE [Concomitant]
     Dosage: UNKNONW
  5. ETODOLAC [Concomitant]
     Dosage: UNKNONW

REACTIONS (1)
  - EAR INFECTION [None]
